FAERS Safety Report 6447998-8 (Version None)
Quarter: 2009Q4

REPORT INFORMATION
  Report Type: 
  Country: None (occurrence: None)
  Receive Date: 20091120
  Receipt Date: 20091114
  Transmission Date: 20100525
  Serious: Yes (Death, Hospitalization)
  Sender: FDA-Public Use
  Company Number: HK-ROCHE-610774

PATIENT
  Sex: Male

DRUGS (7)
  1. CAPECITABINE [Suspect]
     Route: 048
     Dates: start: 20081121, end: 20081128
  2. ERLOTINIB [Suspect]
     Route: 048
     Dates: start: 20081121, end: 20081128
  3. OXALIPLATIN [Suspect]
     Route: 065
     Dates: start: 20081120, end: 20081120
  4. ALLOPURINOL [Concomitant]
  5. ATENOLOL [Concomitant]
  6. PEPCIDINE [Concomitant]
  7. NAPROXEN [Concomitant]
     Dates: start: 20081107

REACTIONS (5)
  - ABDOMINAL SEPSIS [None]
  - DIARRHOEA [None]
  - INTESTINAL OBSTRUCTION [None]
  - INTESTINAL PERFORATION [None]
  - PNEUMONIA ASPIRATION [None]
